FAERS Safety Report 7225394-3 (Version None)
Quarter: 2011Q1

REPORT INFORMATION
  Report Type: 
  Country: None (occurrence: None)
  Receive Date: 20110113
  Receipt Date: 20110111
  Transmission Date: 20110831
  Serious: Yes (Death, Life-Threatening, Other)
  Sender: FDA-Public Use
  Company Number: JP-PFIZER INC-2009244650

PATIENT
  Age: 14 Year
  Sex: Female
  Weight: 36 kg

DRUGS (19)
  1. GLEEVEC [Concomitant]
     Indication: PULMONARY HYPERTENSION
     Dosage: UNK
     Route: 048
     Dates: start: 20090723, end: 20091030
  2. RITUXAN [Concomitant]
     Dosage: UNK
     Route: 042
     Dates: start: 20080702, end: 20090623
  3. TAKEPRON [Concomitant]
     Dosage: 30 MG, 1X/DAY
     Route: 048
     Dates: start: 20071017, end: 20100321
  4. FLOLAN [Suspect]
     Indication: PULMONARY HYPERTENSION
     Dosage: UNK
     Route: 042
     Dates: start: 20081229, end: 20100321
  5. DORNER [Concomitant]
     Dosage: 15 UG, 3X/DAY
     Route: 048
     Dates: start: 20070719, end: 20090105
  6. SILDENAFIL CITRATE [Suspect]
     Indication: PULMONARY ARTERIAL HYPERTENSION
     Dosage: 20 MG, 3X/DAY
     Route: 048
     Dates: start: 20080630
  7. MEXITIL [Concomitant]
     Dosage: 50 MG, 3X/DAY
     Route: 048
     Dates: start: 20080713, end: 20100321
  8. LASIX [Concomitant]
     Indication: PULMONARY ARTERIAL HYPERTENSION
     Dosage: 40 MG, 2X/DAY
     Route: 048
     Dates: start: 20070630, end: 20100321
  9. ZYLORIC ^GLAXO WELLCOME^ [Concomitant]
     Dosage: 100 MG, 3X/DAY
     Route: 048
     Dates: start: 20071017, end: 20100321
  10. PREDONINE [Concomitant]
     Dosage: 2 MG, 3X/DAY
     Route: 048
     Dates: start: 20001105, end: 20100321
  11. ALDACTONE [Concomitant]
     Dosage: 25 MG, 1X/DAY
     Route: 048
     Dates: start: 20080717, end: 20100321
  12. HOKUNALIN [Concomitant]
     Dosage: 2 MG, 1X/DAY
     Route: 062
     Dates: start: 20080229, end: 20100321
  13. LIMETHASONE [Concomitant]
     Dosage: 1 ML, 1X/DAY
     Route: 042
  14. TRACLEER [Suspect]
     Indication: PULMONARY ARTERIAL HYPERTENSION
     Dosage: UNK
     Route: 048
     Dates: start: 20070808, end: 20080713
  15. TRACLEER [Suspect]
     Dosage: 125 MG, 2X/DAY
     Route: 048
     Dates: start: 20081118, end: 20090510
  16. RITUXAN [Concomitant]
     Dosage: UNK
     Dates: start: 20090630, end: 20090630
  17. SINGULAIR [Concomitant]
     Dosage: 5 MG, 1X/DAY
     Route: 048
     Dates: start: 20080229, end: 20100321
  18. SLOW-K [Concomitant]
     Dosage: 1200 MG, 2X/DAY
     Route: 048
     Dates: start: 20080331, end: 20100321
  19. CELLCEPT [Concomitant]
     Dosage: UNK
     Route: 048
     Dates: start: 20080702, end: 20100321

REACTIONS (8)
  - HISTIOCYTOSIS HAEMATOPHAGIC [None]
  - VENTRICULAR EXTRASYSTOLES [None]
  - THROMBOCYTOPENIA [None]
  - RENAL FAILURE ACUTE [None]
  - SINUS TACHYCARDIA [None]
  - VENTRICULAR FIBRILLATION [None]
  - ELECTROCARDIOGRAM ST-T SEGMENT ABNORMAL [None]
  - QRS AXIS ABNORMAL [None]
